FAERS Safety Report 4461406-8 (Version None)
Quarter: 2004Q3

REPORT INFORMATION
  Report Type: 
  Country: None (occurrence: None)
  Receive Date: 20040928
  Receipt Date: 20030220
  Transmission Date: 20050211
  Serious: Yes (Disabling, Other)
  Sender: FDA-Public Use
  Company Number: PHHO2003PL02471

PATIENT
  Age: 63 Year
  Sex: Female
  Weight: 84 kg

DRUGS (9)
  1. TEGASEROD VS PLACEBO [Suspect]
     Indication: CONSTIPATION
     Dosage: 2 MG, BID
     Route: 048
     Dates: start: 20020506, end: 20030122
  2. ENALAPRIL MALEATE [Concomitant]
  3. ISOSORBIDE MONONITRATE [Concomitant]
  4. DETRALEX [Concomitant]
  5. OMEPRAZOLE [Concomitant]
  6. TERTENSIF [Concomitant]
  7. TROXERUTIN [Concomitant]
  8. CALCIUM [Concomitant]
  9. CO-TRIMOXAZOLE [Concomitant]

REACTIONS (2)
  - DYSPEPSIA [None]
  - HEPATIC ENZYME INCREASED [None]
